FAERS Safety Report 6329788-X (Version None)
Quarter: 2009Q3

REPORT INFORMATION
  Report Type: 
  Country: None (occurrence: None)
  Receive Date: 20090826
  Receipt Date: 20090820
  Transmission Date: 20100115
  Serious: Yes (Other)
  Sender: FDA-Public Use
  Company Number: PHHY2009DE35225

PATIENT
  Sex: Female

DRUGS (2)
  1. RASILEZ [Suspect]
  2. VERAPAMIL [Interacting]

REACTIONS (2)
  - DRUG INTERACTION [None]
  - HYPERTENSION [None]
